FAERS Safety Report 5961930-2 (Version None)
Quarter: 2008Q4

REPORT INFORMATION
  Report Type: 
  Country: None (occurrence: None)
  Receive Date: 20081119
  Receipt Date: 20080822
  Transmission Date: 20090506
  Serious: No
  Sender: FDA-Public Use
  Company Number: WAES 0808USA04272

PATIENT
  Age: 75 Year
  Sex: Male
  Weight: 127.0072 kg

DRUGS (6)
  1. JANUVIA [Suspect]
     Indication: DIABETES MELLITUS
     Dosage: 100 MG/DAILY/PO
     Route: 048
     Dates: start: 20080318, end: 20080424
  2. ALTACE [Concomitant]
  3. PULMICORT-100 [Concomitant]
  4. ZOCOR [Concomitant]
  5. ALBUTEROL [Concomitant]
  6. FUROSEMIDE [Concomitant]

REACTIONS (3)
  - OROPHARYNGEAL PAIN [None]
  - PAIN [None]
  - UPPER RESPIRATORY TRACT INFECTION [None]
